FAERS Safety Report 22080978 (Version 1)
Quarter: 2023Q1

REPORT INFORMATION
  Report Type: Spontaneous
  Country: CN (occurrence: CN)
  Receive Date: 20230309
  Receipt Date: 20230309
  Transmission Date: 20230418
  Serious: Yes (Death)
  Sender: FDA-Public Use
  Company Number: CN-PFIZER INC-202300095866

PATIENT
  Age: 59 Year
  Sex: Male
  Weight: 61 kg

DRUGS (5)
  1. VORICONAZOLE [Suspect]
     Active Substance: VORICONAZOLE
     Indication: Anti-infective therapy
     Dosage: 0.2 G, 2X/DAY
     Route: 041
     Dates: start: 202111, end: 202111
  2. METHYLPREDNISOLONE SODIUM SUCCINATE [Suspect]
     Active Substance: METHYLPREDNISOLONE SODIUM SUCCINATE
     Dosage: 120 MG, 1X/DAY, GRADUALLY REDUCED
     Route: 041
     Dates: start: 202111, end: 202111
  3. MEROPENEM [Suspect]
     Active Substance: MEROPENEM
     Dosage: 1 G, 3X/DAY
     Route: 041
     Dates: start: 202111, end: 202111
  4. MYCOPHENOLATE MOFETIL [Suspect]
     Active Substance: MYCOPHENOLATE MOFETIL
     Indication: Pneumonia
     Dosage: 1.5 G, 2X/DAY
     Route: 048
     Dates: start: 202111, end: 202111
  5. INFLIXIMAB [Suspect]
     Active Substance: INFLIXIMAB
     Dosage: 0.26 G, ONCE
     Route: 041
     Dates: start: 202111, end: 202111

REACTIONS (1)
  - Drug ineffective [Fatal]

NARRATIVE: CASE EVENT DATE: 20211101
